FAERS Safety Report 8554906-2 (Version None)
Quarter: 2012Q3

REPORT INFORMATION
  Report Type: 
  Country: None (occurrence: None)
  Receive Date: 20120731
  Receipt Date: 20120723
  Transmission Date: 20120928
  Serious: Yes (Hospitalization)
  Sender: FDA-Public Use
  Company Number: US-ELI_LILLY_AND_COMPANY-US201105007717

PATIENT
  Sex: Female

DRUGS (5)
  1. FORTEO [Suspect]
     Dosage: 20 UG, QD
     Route: 065
  2. FORTEO [Suspect]
     Indication: OSTEOPOROSIS
     Dosage: 20 UG, QD
     Route: 065
  3. CALCIUM [Concomitant]
  4. TRAMADOL HYDROCHLORIDE [Concomitant]
     Indication: PAIN
  5. VITAMIN D [Concomitant]

REACTIONS (11)
  - BRADYPHRENIA [None]
  - FEELING ABNORMAL [None]
  - NAUSEA [None]
  - PALPITATIONS [None]
  - STRESS [None]
  - CHEST DISCOMFORT [None]
  - INJECTION SITE HAEMATOMA [None]
  - HEAD DISCOMFORT [None]
  - MYALGIA [None]
  - HEADACHE [None]
  - INJECTION SITE PAIN [None]
